FAERS Safety Report 7557296-7 (Version None)
Quarter: 2011Q2

REPORT INFORMATION
  Report Type: 
  Country: None (occurrence: None)
  Receive Date: 20110620
  Receipt Date: 20081217
  Transmission Date: 20111010
  Serious: Yes (Life-Threatening, Other)
  Sender: FDA-Public Use
  Company Number: PHHY2008US32371

PATIENT
  Sex: Female

DRUGS (1)
  1. FEMARA [Suspect]
     Indication: BREAST CANCER
     Dosage: 2.5 MG, QD
     Route: 048
     Dates: start: 20040501, end: 20081001

REACTIONS (5)
  - BREAST MASS [None]
  - ANAEMIA [None]
  - ASTHENIA [None]
  - BIOPSY [None]
  - BREAST CANCER RECURRENT [None]
